FAERS Safety Report 8956926 (Version 1)
Quarter: 2012Q4

REPORT INFORMATION
  Report Type: Spontaneous
  Country: US (occurrence: None)
  Receive Date: 20121205
  Receipt Date: 20121205
  Transmission Date: 20130627
  Serious: Yes (Other)
  Sender: FDA-Public Use
  Company Number: None

PATIENT
  Age: 55 Year
  Sex: Female
  Weight: 75.75 kg

DRUGS (1)
  1. AMLODIPINE BESYLATE/ATORVASTATIN CALCIUM [Suspect]
     Dosage: 1 each morning
     Dates: start: 20120309, end: 20121009

REACTIONS (5)
  - Drug dispensing error [None]
  - Drug administration error [None]
  - Constipation [None]
  - Muscle spasms [None]
  - Menopause [None]
